FAERS Safety Report 9798905 (Version 2)
Quarter: 2014Q1

REPORT INFORMATION
  Report Type: Spontaneous
  Country: US (occurrence: US)
  Receive Date: 20140106
  Receipt Date: 20140106
  Transmission Date: 20141002
  Serious: No
  Sender: FDA-Public Use
  Company Number: US-GILEAD-2010-0033507

PATIENT
  Age: 69 Year
  Sex: Female

DRUGS (12)
  1. LETAIRIS [Suspect]
     Indication: PULMONARY ARTERIAL HYPERTENSION
     Route: 048
     Dates: start: 20100908, end: 20101110
  2. DILTIAZEM CD [Concomitant]
  3. LISINOPRIL [Concomitant]
  4. COUMADIN [Concomitant]
  5. FUROSEMIDE [Concomitant]
  6. OMEPRAZOLE [Concomitant]
  7. MAG-OX [Concomitant]
  8. NEURONTIN [Concomitant]
  9. FEMARA [Concomitant]
  10. ALENDRONATE SODIUM [Concomitant]
  11. NITROFURANTOIN [Concomitant]
  12. POTASSIUM CHLORIDE [Concomitant]

REACTIONS (1)
  - Dizziness [Recovering/Resolving]
